FAERS Safety Report 6413789-7 (Version None)
Quarter: 2009Q4

REPORT INFORMATION
  Report Type: 
  Country: None (occurrence: None)
  Receive Date: 20091026
  Receipt Date: 20091001
  Transmission Date: 20100525
  Serious: No
  Sender: FDA-Public Use
  Company Number: US-BAYER-200934023NA

PATIENT
  Age: 44 Year
  Sex: Male

DRUGS (4)
  1. LEVITRA [Suspect]
     Indication: ERECTILE DYSFUNCTION
     Dates: start: 20090801
  2. XANAX [Concomitant]
  3. SEROQUEL [Concomitant]
  4. PRISTIQ [Concomitant]

REACTIONS (1)
  - ERECTILE DYSFUNCTION [None]
